FAERS Safety Report 8119441-4 (Version None)
Quarter: 2012Q1

REPORT INFORMATION
  Report Type: 
  Country: None (occurrence: None)
  Receive Date: 20120207
  Receipt Date: 20120127
  Transmission Date: 20120608
  Serious: Yes (Other)
  Sender: FDA-Public Use
  Company Number: AU-TEVA-320958ISR

PATIENT
  Sex: Female

DRUGS (8)
  1. CALCIUM [Concomitant]
  2. PANTOPRAZOLE [Concomitant]
  3. METAMUCIL-2 [Concomitant]
  4. FOLIC ACID [Concomitant]
  5. METFORMIN HCL [Concomitant]
  6. ORENCIA [Suspect]
     Indication: RHEUMATOID ARTHRITIS
     Route: 042
     Dates: start: 20100501
  7. METHOTREXATE [Suspect]
     Route: 048
  8. PREDNISONE [Concomitant]

REACTIONS (6)
  - PYREXIA [None]
  - LYMPHOMA [None]
  - INFECTION [None]
  - BASAL CELL CARCINOMA [None]
  - CONJUNCTIVITIS [None]
  - LOWER RESPIRATORY TRACT INFECTION [None]
